FAERS Safety Report 6467464-3 (Version None)
Quarter: 2009Q4

REPORT INFORMATION
  Report Type: 
  Country: None (occurrence: None)
  Receive Date: 20091202
  Receipt Date: 20091124
  Transmission Date: 20100525
  Serious: Yes (Life-Threatening, Hospitalization)
  Sender: FDA-Public Use
  Company Number: GXKR2009GB12761

PATIENT
  Age: 67 Year
  Sex: Female

DRUGS (6)
  1. RISPERIDONE (NGX) [Suspect]
     Route: 065
  2. RISPERDAL [Suspect]
     Indication: SCHIZOPHRENIA, PARANOID TYPE
     Dosage: 25 MG, BIW
     Route: 030
     Dates: start: 20030101
  3. RISPERDAL [Suspect]
     Dosage: 37.5 MG, BIW
     Route: 030
  4. RISPERDAL [Suspect]
     Dosage: 50 MG, BIW
     Route: 030
  5. RISPERDAL [Suspect]
     Dosage: 62.5 MG, BIW
     Route: 030
  6. CITALOPRAM HYDROBROMIDE [Concomitant]
     Indication: DEPRESSION
     Dosage: 20 MG, QD
     Route: 065
     Dates: start: 20040707

REACTIONS (5)
  - DRUG INEFFECTIVE [None]
  - GASTROINTESTINAL CARCINOMA [None]
  - METASTASES TO LIVER [None]
  - OVERDOSE [None]
  - SURGERY [None]
